FAERS Safety Report 24301080 (Version 1)
Quarter: 2024Q3

REPORT INFORMATION
  Report Type: Spontaneous
  Country: US (occurrence: US)
  Receive Date: 20240910
  Receipt Date: 20240910
  Transmission Date: 20241017
  Serious: No
  Sender: PADAGIS
  Company Number: US-PADAGIS-2024PAD01441

PATIENT

DRUGS (8)
  1. CLINDAMYCIN PHOSPHATE [Suspect]
     Active Substance: CLINDAMYCIN PHOSPHATE
     Indication: Dermatitis acneiform
     Dosage: UNK
     Route: 061
  2. HYDROCORTISONE [Suspect]
     Active Substance: HYDROCORTISONE\HYDROCORTISONE ACETATE
     Indication: Dermatitis acneiform
     Dosage: UNK
     Route: 065
  3. TEMOZOLOMIDE [Concomitant]
     Active Substance: TEMOZOLOMIDE
     Indication: Ependymoma
     Dosage: 100 MG/M2 (SEVEN DAYS ON, SEVEN DAYS OFF)
     Route: 048
  4. TEMOZOLOMIDE [Concomitant]
     Active Substance: TEMOZOLOMIDE
     Dosage: 125 MG/M2 (CYCLE 2)
     Route: 048
  5. TEMOZOLOMIDE [Concomitant]
     Active Substance: TEMOZOLOMIDE
     Dosage: 100 MG/M2 (CYCLE 3 TO CYCLE 12)
     Route: 048
  6. LAPATINIB [Concomitant]
     Active Substance: LAPATINIB
     Indication: Ependymoma
     Dosage: 1250 MG (POSTPARTUM)
     Route: 065
  7. LAPATINIB [Concomitant]
     Active Substance: LAPATINIB
     Dosage: 1000 MG
     Route: 065
  8. LAPATINIB [Concomitant]
     Active Substance: LAPATINIB
     Dosage: 750 MG
     Route: 065

REACTIONS (2)
  - Therapy partial responder [Unknown]
  - Product use in unapproved indication [Unknown]
